FAERS Safety Report 7115989-X (Version None)
Quarter: 2010Q4

REPORT INFORMATION
  Report Type: 
  Country: None (occurrence: None)
  Receive Date: 20101122
  Receipt Date: 20101115
  Transmission Date: 20110411
  Serious: Yes (Death)
  Sender: FDA-Public Use
  Company Number: US-GILEAD-2010-0032979

PATIENT
  Sex: Female

DRUGS (15)
  1. LETAIRIS [Suspect]
     Indication: PULMONARY ARTERIAL HYPERTENSION
     Route: 048
     Dates: start: 20100330
  2. VIAGRA [Concomitant]
  3. COUMADIN [Concomitant]
     Indication: CORONARY ARTERY DISEASE
     Dates: end: 20101019
  4. ASPIRIN [Concomitant]
     Indication: CORONARY ARTERY DISEASE
     Dates: end: 20101019
  5. PLAVIX [Concomitant]
     Indication: CORONARY ARTERY DISEASE
     Dates: end: 20101019
  6. LASIX [Concomitant]
     Indication: CARDIAC FAILURE CONGESTIVE
  7. DEMADEX [Concomitant]
     Indication: CARDIAC FAILURE CONGESTIVE
  8. DIGOXIN [Concomitant]
     Indication: CARDIAC FAILURE CONGESTIVE
  9. IMURAN [Concomitant]
     Indication: INTERSTITIAL LUNG DISEASE
  10. SOLU-MEDROL [Concomitant]
     Indication: INTERSTITIAL LUNG DISEASE
  11. PREDNISONE [Concomitant]
     Indication: INTERSTITIAL LUNG DISEASE
  12. NEXIUM [Concomitant]
  13. BACTRIM [Concomitant]
  14. FOSAMAX [Concomitant]
  15. MEGACE [Concomitant]

REACTIONS (1)
  - DEATH [None]
